FAERS Safety Report 6110876-8 (Version None)
Quarter: 2009Q1

REPORT INFORMATION
  Report Type: 
  Country: None (occurrence: None)
  Receive Date: 20090311
  Receipt Date: 20090303
  Transmission Date: 20090719
  Serious: Yes (Hospitalization)
  Sender: FDA-Public Use
  Company Number: US-ASTRAZENECA-2009UW05733

PATIENT
  Age: 46 Year
  Sex: Female

DRUGS (3)
  1. SEROQUEL [Suspect]
     Route: 048
  2. LITHIUM [Concomitant]
     Route: 048
  3. CYMBALTA [Concomitant]
     Route: 048

REACTIONS (1)
  - BRAIN NEOPLASM [None]
